FAERS Safety Report 22255785 (Version 1)
Quarter: 2023Q2

REPORT INFORMATION
  Report Type: Spontaneous
  Country: GB (occurrence: GB)
  Receive Date: 20230426
  Receipt Date: 20230426
  Transmission Date: 20230721
  Serious: Yes (Life-Threatening, Hospitalization, Other)
  Sender: FDA-Public Use
  Company Number: GB-JUBILANT CADISTA PHARMACEUTICALS-2023JUB00167

PATIENT
  Age: 33 Year
  Sex: Female

DRUGS (6)
  1. QUETIAPINE [Suspect]
     Active Substance: QUETIAPINE
     Dosage: OVERDOSE, 2100 MG, 1 TOTAL
  2. QUETIAPINE [Suspect]
     Active Substance: QUETIAPINE
     Dosage: OVERDOSE, 100 MG, 1X/DAY
  3. PREGABALIN [Suspect]
     Active Substance: PREGABALIN
     Dosage: OVERDOSE, 1 {DF}, 1 TOTAL
  4. PREGABALIN [Suspect]
     Active Substance: PREGABALIN
     Dosage: OVERDOSE
  5. DULOXETINE [Suspect]
     Active Substance: DULOXETINE
     Dosage: OVERDOSE
  6. DULOXETINE [Suspect]
     Active Substance: DULOXETINE
     Dosage: OVERDOSE, 1 {DF}, 1 TOTAL

REACTIONS (3)
  - Overdose [Recovered/Resolved]
  - Respiratory disorder [Recovered/Resolved]
  - Hypotension [Recovered/Resolved]
